FAERS Safety Report 7306794-X (Version None)
Quarter: 2011Q1

REPORT INFORMATION
  Report Type: 
  Country: None (occurrence: None)
  Receive Date: 20110223
  Receipt Date: 20110214
  Transmission Date: 20110831
  Serious: Yes (Other)
  Sender: FDA-Public Use
  Company Number: DE-BAYER-2011-008124

PATIENT
  Sex: Male
  Weight: 95 kg

DRUGS (3)
  1. HEPARIN [Concomitant]
     Dosage: 1000 IU, UNK
  2. ULTRAVIST 150 [Suspect]
     Indication: ARTERIOGRAM CORONARY
     Dosage: 80 ML, ONCE
  3. GODAMED [Concomitant]
     Dosage: 100 MG, QD

REACTIONS (2)
  - VISUAL IMPAIRMENT [None]
  - PHOTOPSIA [None]
